FAERS Safety Report 5217256-8 (Version None)
Quarter: 2007Q1

REPORT INFORMATION
  Report Type: 
  Country: None (occurrence: None)
  Receive Date: 20070124
  Receipt Date: 20070118
  Transmission Date: 20070707
  Serious: Yes (Other)
  Sender: FDA-Public Use
  Company Number: US-ROCHE-471794

PATIENT
  Age: 51 Year
  Sex: Female

DRUGS (2)
  1. PEGASYS [Suspect]
     Route: 065
     Dates: start: 20060519
  2. COPEGUS [Suspect]
     Route: 048
     Dates: start: 20060519

REACTIONS (2)
  - ELECTROCARDIOGRAM T WAVE INVERSION [None]
  - VENTRICULAR EXTRASYSTOLES [None]
